FAERS Safety Report 4500103-7 (Version None)
Quarter: 2004Q4

REPORT INFORMATION
  Report Type: 
  Country: None (occurrence: None)
  Receive Date: 20041112
  Receipt Date: 20041111
  Transmission Date: 20050328
  Serious: Yes (Hospitalization, Other)
  Sender: FDA-Public Use
  Company Number: US-GLAXOSMITHKLINE-A0533611A

PATIENT
  Sex: Male

DRUGS (1)
  1. ARIXTRA [Suspect]
     Indication: DEEP VEIN THROMBOSIS
     Dosage: 5MG PER DAY
     Route: 058

REACTIONS (1)
  - INTESTINAL OBSTRUCTION [None]
